FAERS Safety Report 10755545 (Version 1)
Quarter: 2015Q1

REPORT INFORMATION
  Report Type: Spontaneous
  Country: US (occurrence: None)
  Receive Date: 20150123
  Receipt Date: 20150123
  Transmission Date: 20150721
  Serious: No
  Sender: FDA-Public Use
  Company Number: 2014TUS008520

PATIENT
  Age: 20 Year
  Sex: Female
  Weight: 93 kg

DRUGS (14)
  1. FEXOFENADINE HCL [Suspect]
     Active Substance: FEXOFENADINE HYDROCHLORIDE
     Indication: PRODUCT USED FOR UNKNOWN INDICATION
     Dates: start: 20131231
  2. CALCIUM [Concomitant]
     Active Substance: CALCIUM
  3. NEXIUM/01479302/ (ESOMEPRAZOLE MAGNESIUM) [Concomitant]
  4. SPIRONOLACTONE. [Concomitant]
     Active Substance: SPIRONOLACTONE
  5. ALIGN (BIFIDOBACTERIUM INFANTIS) [Concomitant]
  6. MINERALS NOS W/VITAMINS NOS (MINERALS NOS, VITAMINS NOS) [Concomitant]
  7. BENADRYL [Suspect]
     Active Substance: DIPHENHYDRAMINE HYDROCHLORIDE
     Indication: PRODUCT USED FOR UNKNOWN INDICATION
     Route: 048
  8. METFORMIN HCL (METFORMIN HYDROCHLORIDE) [Concomitant]
  9. ORTHO-TRI-CYCLEN (ETHINYLESTRADIOL, NORGESTIMATE) [Concomitant]
  10. ENTYVIO [Suspect]
     Active Substance: VEDOLIZUMAB
     Indication: COLITIS ULCERATIVE
     Dosage: 300 MG, 1ST DOSE, INTRAVENOUS
     Route: 042
     Dates: start: 20140714, end: 20140714
  11. LIALDA (MESALAZINE) [Concomitant]
  12. FERROUS SULFATE [Concomitant]
     Active Substance: FERROUS SULFATE\FERROUS SULFATE, DRIED
  13. UNKNOWN MEDICATIONS (ALL OTHER THERAPEUTIC PRODUCTS) [Concomitant]
  14. ONDANSETRON HCL (ONDANSETRON HYDROCHLORIDE) [Concomitant]
     Active Substance: ONDANSETRON HYDROCHLORIDE

REACTIONS (3)
  - Headache [None]
  - Tic [None]
  - JC virus test positive [None]

NARRATIVE: CASE EVENT DATE: 20140903
